FAERS Safety Report 19927410 (Version 1)
Quarter: 2021Q4

REPORT INFORMATION
  Report Type: Spontaneous
  Country: US (occurrence: US)
  Receive Date: 20211007
  Receipt Date: 20211007
  Transmission Date: 20220304
  Serious: Yes (Hospitalization)
  Sender: FDA-Public Use
  Company Number: US-INDIVIOR EUROPE LIMITED-INDV-121006-2019

PATIENT

DRUGS (8)
  1. SUBOXONE [Suspect]
     Active Substance: BUPRENORPHINE HYDROCHLORIDE\NALOXONE HYDROCHLORIDE
     Indication: Drug dependence
     Dosage: 2 MILLIGRAM, 6 TIMES DAILY
     Route: 060
     Dates: end: 2019
  2. SUBOXONE [Suspect]
     Active Substance: BUPRENORPHINE HYDROCHLORIDE\NALOXONE HYDROCHLORIDE
     Dosage: 2 MILLIGRAM, 6 TIMES DAILY
     Route: 060
     Dates: start: 2019, end: 201908
  3. SUBOXONE [Suspect]
     Active Substance: BUPRENORPHINE HYDROCHLORIDE\NALOXONE HYDROCHLORIDE
     Dosage: 2 MILLIGRAM, 6 TIMES DAILY
     Route: 060
     Dates: start: 201908
  4. SUBOXONE [Suspect]
     Active Substance: BUPRENORPHINE HYDROCHLORIDE\NALOXONE HYDROCHLORIDE
     Dosage: 2 MILLIGRAM, (ONE FILM, ONE EVERY TWO HOURS)
     Route: 060
  5. SUBOXONE [Suspect]
     Active Substance: BUPRENORPHINE HYDROCHLORIDE\NALOXONE HYDROCHLORIDE
     Indication: Drug dependence
     Dosage: 8 MILLIGRAM (2 AND A HALF FILM DAILY)
     Route: 060
     Dates: start: 2012
  6. SUBOXONE [Suspect]
     Active Substance: BUPRENORPHINE HYDROCHLORIDE\NALOXONE HYDROCHLORIDE
     Indication: Drug dependence
     Dosage: 8 MILLIGRAM, UNK
     Route: 065
  7. SUBOXONE [Suspect]
     Active Substance: BUPRENORPHINE HYDROCHLORIDE\NALOXONE HYDROCHLORIDE
     Dosage: 2 MILLIGRAM, UNK
     Route: 065
  8. ALCOHOL [Suspect]
     Active Substance: ALCOHOL
     Indication: Product used for unknown indication
     Dosage: UNK
     Route: 065

REACTIONS (15)
  - Drug detoxification [Recovered/Resolved]
  - Vision blurred [Recovered/Resolved]
  - Drug abuse [Not Recovered/Not Resolved]
  - Headache [Recovered/Resolved]
  - Inappropriate schedule of product administration [Not Recovered/Not Resolved]
  - Wrong technique in product usage process [Recovered/Resolved]
  - Drug intolerance [Unknown]
  - Dizziness [Recovered/Resolved]
  - Drug dependence [Unknown]
  - Drug dependence [Recovered/Resolved]
  - Drug withdrawal syndrome [Unknown]
  - Muscle spasms [Recovering/Resolving]
  - Tremor [Recovering/Resolving]
  - Influenza [Recovering/Resolving]
  - Intentional underdose [Not Recovered/Not Resolved]

NARRATIVE: CASE EVENT DATE: 20120101
